FAERS Safety Report 7407274-3 (Version None)
Quarter: 2011Q2

REPORT INFORMATION
  Report Type: 
  Country: None (occurrence: None)
  Receive Date: 20110411
  Receipt Date: 20110330
  Transmission Date: 20111010
  Serious: Yes (Other)
  Sender: FDA-Public Use
  Company Number: PHHY2011CA22927

PATIENT
  Sex: Female

DRUGS (9)
  1. CALCIUM [Concomitant]
     Dosage: 500 MG, BID
  2. SPIRIVA [Concomitant]
     Dosage: UNK
  3. ACLASTA [Suspect]
     Indication: OSTEOPOROSIS
     Dosage: 5 MG
     Route: 042
     Dates: start: 20100325
  4. VITAMIN D [Concomitant]
     Dosage: 400 MG, BID
  5. JANUVIA [Concomitant]
     Dosage: 100 MG DAILY
  6. ASPIRIN [Concomitant]
     Dosage: 80 MG DAILY
  7. VENTOLIN [Concomitant]
     Dosage: UNK
  8. PANTOLOC [Concomitant]
     Dosage: 40 MG DAILY
  9. ZOCOR [Concomitant]
     Dosage: 40 MG DAILY

REACTIONS (1)
  - PNEUMONIA [None]
